FAERS Safety Report 5264666-9 (Version None)
Quarter: 2007Q1

REPORT INFORMATION
  Report Type: 
  Country: None (occurrence: None)
  Receive Date: 20070314
  Receipt Date: 20070309
  Transmission Date: 20070707
  Serious: Yes (Death)
  Sender: FDA-Public Use
  Company Number: KR-JNJFOC-20070302105

PATIENT
  Sex: Male
  Weight: 57 kg

DRUGS (7)
  1. SPORANOX [Suspect]
     Route: 042
  2. SPORANOX [Suspect]
     Indication: SYSTEMIC MYCOSIS
     Route: 042
  3. CLINDAMYCIN [Concomitant]
     Route: 065
  4. GANCICLOVIR [Concomitant]
     Route: 065
  5. MEROPENEM [Concomitant]
     Route: 065
  6. VANCOMYCIN HYDROCHLORIDE [Concomitant]
     Route: 065
  7. PRIMAQUINE [Concomitant]
     Route: 065

REACTIONS (6)
  - DISSEMINATED INTRAVASCULAR COAGULATION [None]
  - HEPATIC ENZYME INCREASED [None]
  - HYPOTENSION [None]
  - PNEUMONIA [None]
  - PULMONARY OEDEMA [None]
  - SEPSIS [None]
